FAERS Safety Report 14974430 (Version 1)
Quarter: 2018Q2

REPORT INFORMATION
  Report Type: Spontaneous
  Country: ES (occurrence: ES)
  Receive Date: 20180605
  Receipt Date: 20180605
  Transmission Date: 20180711
  Serious: Yes (Other)
  Sender: FDA-Public Use
  Company Number: ES-TEVA-2018-ES-900128

PATIENT

DRUGS (1)
  1. OXALIPLATIN,SOLUTION FOR INFUSION,5MG/ML [Suspect]
     Active Substance: OXALIPLATIN
     Route: 042
     Dates: start: 20180129

REACTIONS (3)
  - Stridor [Unknown]
  - Neuropathy peripheral [Unknown]
  - Gait disturbance [Unknown]

NARRATIVE: CASE EVENT DATE: 20180129
